FAERS Safety Report 24424609 (Version 2)
Quarter: 2024Q4

REPORT INFORMATION
  Report Type: Spontaneous
  Country: SE (occurrence: SE)
  Receive Date: 20241010
  Receipt Date: 20241024
  Transmission Date: 20250115
  Serious: Yes (Hospitalization, Other)
  Sender: TEVA
  Company Number: None

PATIENT
  Age: 48 Year
  Sex: Female

DRUGS (18)
  1. NAPROXEN [Suspect]
     Active Substance: NAPROXEN
     Indication: Post-traumatic neck syndrome
     Dosage: TIME INTERVAL: AS NECESSARY: 1 VB MAX 2
     Route: 048
     Dates: start: 20130913, end: 20210318
  2. NAPROXEN [Suspect]
     Active Substance: NAPROXEN
     Indication: Post-traumatic neck syndrome
     Dosage: TIME INTERVAL: AS NECESSARY: 1VB MAX 2
     Route: 048
     Dates: start: 20181218, end: 20191122
  3. PROPIOMAZINE [Concomitant]
     Active Substance: PROPIOMAZINE
     Indication: Product used for unknown indication
     Dosage: 1-2 UNTIL THE NIGHT
     Route: 065
  4. CITALOPRAM [Concomitant]
     Active Substance: CITALOPRAM
     Indication: Product used for unknown indication
     Dosage: 10-40 MG
     Route: 065
     Dates: start: 20100511, end: 20200204
  5. ESTRADIOL [Concomitant]
     Active Substance: ESTRADIOL
     Indication: Product used for unknown indication
     Dosage: VARYING DOSAGE FROM 37.5 UG/24 HOURS TO 100 UG/24 HOURS (THE LATTER DOSE 2020-06-08--10-25)
     Route: 065
     Dates: start: 20191111, end: 20210317
  6. GABAPENTIN [Concomitant]
     Active Substance: GABAPENTIN
     Indication: Product used for unknown indication
     Dosage: SLIGHTLY VARYING DOSE OVER TIME WITH A MAXIMUM OF 3000 MG/D.
     Route: 065
     Dates: start: 20020611
  7. DIAZEPAM [Concomitant]
     Active Substance: DIAZEPAM
     Indication: Product used for unknown indication
     Dosage: TIME INTERVAL: AS NECESSARY: ETC
     Route: 065
  8. DOMPERIDONE [Concomitant]
     Active Substance: DOMPERIDONE
     Indication: Product used for unknown indication
     Dosage: TIME INTERVAL: AS NECESSARY
     Route: 065
     Dates: start: 20151030, end: 20200922
  9. Behepan [Concomitant]
     Indication: Product used for unknown indication
     Dosage: BEHEPAN OR BETOLVEX
     Route: 065
  10. Folacin [Concomitant]
     Indication: Product used for unknown indication
     Dosage: FOLACIN OR FOLVIDON
     Route: 065
  11. CELEBRA [Suspect]
     Active Substance: CELECOXIB
     Indication: Post-traumatic neck syndrome
     Route: 048
     Dates: start: 20191122, end: 20200903
  12. OMEPRAZOLE [Concomitant]
     Active Substance: OMEPRAZOLE
     Indication: Product used for unknown indication
     Route: 065
     Dates: start: 20140326
  13. IMOVANE [Concomitant]
     Active Substance: ZOPICLONE
     Indication: Product used for unknown indication
     Dosage: TIME INTERVAL: AS NECESSARY
     Route: 065
     Dates: start: 20190716
  14. EBASTINE [Concomitant]
     Active Substance: EBASTINE
     Indication: Product used for unknown indication
     Dosage: TIME INTERVAL: AS NECESSARY
     Route: 065
  15. LINACLOTIDE [Concomitant]
     Active Substance: LINACLOTIDE
     Indication: Product used for unknown indication
     Route: 065
     Dates: start: 20131223
  16. PRUCALOPRIDE SUCCINATE [Concomitant]
     Active Substance: PRUCALOPRIDE SUCCINATE
     Indication: Product used for unknown indication
     Route: 065
     Dates: start: 20140108
  17. PROVERA [Concomitant]
     Active Substance: MEDROXYPROGESTERONE ACETATE
     Indication: Product used for unknown indication
     Dosage: ACCORDING TO SCHEDULE
     Route: 065
     Dates: start: 20200328, end: 20210316
  18. ACETAMINOPHEN [Concomitant]
     Active Substance: ACETAMINOPHEN
     Indication: Product used for unknown indication
     Dosage: TIME INTERVAL: AS NECESSARY: 1-2 VB MAX 6
     Route: 065
     Dates: start: 20020611

REACTIONS (9)
  - Drug-induced liver injury [Recovered/Resolved with Sequelae]
  - Transaminases increased [Recovered/Resolved with Sequelae]
  - Constipation [Recovered/Resolved with Sequelae]
  - Pain [Recovered/Resolved with Sequelae]
  - Abdominal pain [Recovered/Resolved with Sequelae]
  - Syncope [Unknown]
  - Nausea [Unknown]
  - C-reactive protein increased [Unknown]
  - Sepsis [Unknown]

NARRATIVE: CASE EVENT DATE: 20131029
